FAERS Safety Report 10401438 (Version 1)
Quarter: 2014Q3

REPORT INFORMATION
  Report Type: Spontaneous
  Country: US (occurrence: None)
  Receive Date: 20140819
  Receipt Date: 20140819
  Transmission Date: 20150326
  Serious: Yes (Other)
  Sender: FDA-Public Use
  Company Number: None

PATIENT
  Age: 19 Year
  Sex: Female

DRUGS (1)
  1. PREDNISONE. [Suspect]
     Active Substance: PREDNISONE
     Route: 048

REACTIONS (5)
  - Patient isolation [None]
  - Self-injurious ideation [None]
  - Suicidal ideation [None]
  - Psychiatric symptom [None]
  - Depressed mood [None]

NARRATIVE: CASE EVENT DATE: 20140810
